FAERS Safety Report 20438834 (Version 2)
Quarter: 2022Q2

REPORT INFORMATION
  Report Type: Spontaneous
  Country: US (occurrence: US)
  Receive Date: 20220207
  Receipt Date: 20220518
  Transmission Date: 20220721
  Serious: No
  Sender: FDA-Public Use
  Company Number: US-PFIZER INC-202101863306

PATIENT
  Age: 78 Year
  Sex: Female

DRUGS (1)
  1. PREMARIN [Suspect]
     Active Substance: ESTROGENS, CONJUGATED
     Indication: Menopausal symptoms
     Dosage: 0.3 MG, 1X/DAY
     Route: 048

REACTIONS (4)
  - Confusional state [Unknown]
  - Crying [Unknown]
  - Memory impairment [Unknown]
  - Musculoskeletal stiffness [Unknown]
